FAERS Safety Report 5607290-8 (Version None)
Quarter: 2008Q1

REPORT INFORMATION
  Report Type: 
  Country: None (occurrence: None)
  Receive Date: 20080130
  Receipt Date: 20080122
  Transmission Date: 20080703
  Serious: Yes (Other)
  Sender: FDA-Public Use
  Company Number: NZ-JNJFOC-20071109816

PATIENT
  Sex: Female
  Weight: 60 kg

DRUGS (5)
  1. REMICADE [Suspect]
     Indication: COLITIS ULCERATIVE
     Dosage: 2 INFUSIONS
     Route: 042
  2. AZATHIOPRINE [Concomitant]
     Indication: INFLAMMATORY BOWEL DISEASE
     Route: 048
  3. MERCAPTOPURINE [Concomitant]
     Indication: INFLAMMATORY BOWEL DISEASE
     Route: 048
  4. PREDNISONE TAB [Concomitant]
     Indication: INFLAMMATORY BOWEL DISEASE
     Dosage: VARIABLE
     Route: 048
  5. PENTASA [Concomitant]
     Indication: INFLAMMATORY BOWEL DISEASE
     Route: 048

REACTIONS (2)
  - ABORTION SPONTANEOUS [None]
  - DRUG EXPOSURE DURING PREGNANCY [None]
